FAERS Safety Report 9463895 (Version 1)
Quarter: 2013Q3

REPORT INFORMATION
  Report Type: Report from Study
  Country: CA (occurrence: CA)
  Receive Date: 20130819
  Receipt Date: 20130819
  Transmission Date: 20140515
  Serious: Yes (Hospitalization)
  Sender: FDA-Public Use
  Company Number: CA-JNJFOC-20130805634

PATIENT
  Age: 51 Year
  Sex: Female
  Weight: 78.3 kg

DRUGS (2)
  1. REMICADE [Suspect]
     Indication: IRITIS
     Route: 042
     Dates: start: 20101110, end: 20130801
  2. REMICADE [Suspect]
     Indication: ANKYLOSING SPONDYLITIS
     Route: 042
     Dates: start: 20101110, end: 20130801

REACTIONS (1)
  - Pancreatitis [Not Recovered/Not Resolved]
